FAERS Safety Report 23677634 (Version 1)
Quarter: 2024Q1

REPORT INFORMATION
  Report Type: Spontaneous
  Country: US (occurrence: US)
  Receive Date: 20240327
  Receipt Date: 20240327
  Transmission Date: 20240409
  Serious: Yes (Other)
  Sender: FDA-Public Use
  Company Number: US-ASTELLAS-2024US008166

PATIENT
  Sex: Female

DRUGS (10)
  1. IZERVAY [Suspect]
     Active Substance: AVACINCAPTAD PEGOL SODIUM
     Indication: Product used for unknown indication
     Dosage: UNK UNK, UNKNOWN FREQ. (EYE: UNKNOWN)
     Route: 065
     Dates: start: 20231107, end: 20231107
  2. IZERVAY [Suspect]
     Active Substance: AVACINCAPTAD PEGOL SODIUM
     Indication: Product used for unknown indication
     Dosage: UNK UNK, UNKNOWN FREQ. (EYE: UNKNOWN)
     Route: 065
     Dates: start: 20231107, end: 20231107
  3. IZERVAY [Suspect]
     Active Substance: AVACINCAPTAD PEGOL SODIUM
     Indication: Product used for unknown indication
     Dosage: UNK UNK, UNKNOWN FREQ. (EYE: UNKNOWN)
     Route: 065
     Dates: start: 20231107, end: 20231107
  4. IZERVAY [Suspect]
     Active Substance: AVACINCAPTAD PEGOL SODIUM
     Indication: Product used for unknown indication
     Dosage: UNK UNK, UNKNOWN FREQ. (EYE: UNKNOWN)
     Route: 065
     Dates: start: 20231107, end: 20231107
  5. IZERVAY [Suspect]
     Active Substance: AVACINCAPTAD PEGOL SODIUM
     Indication: Product used for unknown indication
     Dosage: UNK UNK, UNKNOWN FREQ. (EYE: UNKNOWN)
     Route: 065
     Dates: start: 20231107, end: 20231107
  6. IZERVAY [Suspect]
     Active Substance: AVACINCAPTAD PEGOL SODIUM
     Dosage: UNK UNK, UNKNOWN FREQ. (EYE: UNKNOWN)
     Route: 065
  7. IZERVAY [Suspect]
     Active Substance: AVACINCAPTAD PEGOL SODIUM
     Dosage: UNK UNK, UNKNOWN FREQ. (EYE: UNKNOWN)
     Route: 065
  8. IZERVAY [Suspect]
     Active Substance: AVACINCAPTAD PEGOL SODIUM
     Dosage: UNK UNK, UNKNOWN FREQ. (EYE: UNKNOWN)
     Route: 065
  9. IZERVAY [Suspect]
     Active Substance: AVACINCAPTAD PEGOL SODIUM
     Dosage: UNK UNK, UNKNOWN FREQ. (EYE: UNKNOWN)
     Route: 065
  10. IZERVAY [Suspect]
     Active Substance: AVACINCAPTAD PEGOL SODIUM
     Dosage: UNK UNK, UNKNOWN FREQ. (EYE: UNKNOWN)
     Route: 065

REACTIONS (1)
  - Macular cyst [Recovered/Resolved]
